FAERS Safety Report 24095665 (Version 1)
Quarter: 2024Q3

REPORT INFORMATION
  Report Type: Spontaneous
  Country: AT (occurrence: AT)
  Receive Date: 20240716
  Receipt Date: 20240716
  Transmission Date: 20241017
  Serious: Yes (Other)
  Sender: SANDOZ
  Company Number: None

PATIENT
  Age: 60 Year
  Sex: Female
  Weight: 80 kg

DRUGS (16)
  1. BENDAMUSTINE [Suspect]
     Active Substance: BENDAMUSTINE
     Indication: Diffuse large B-cell lymphoma
     Dosage: 185.23 MG (BINDING THERAPY); START DATE: 26-OCT-2023
     Route: 065
     Dates: end: 20231027
  2. CYCLOPHOSPHAMIDE [Suspect]
     Active Substance: CYCLOPHOSPHAMIDE
     Dosage: THE LAST DOSE PRIOR TO THE EVENT WAS IV 1594.45 MG
     Route: 042
     Dates: start: 20230201, end: 20230517
  3. CYCLOPHOSPHAMIDE [Suspect]
     Active Substance: CYCLOPHOSPHAMIDE
     Indication: Diffuse large B-cell lymphoma
     Dosage: 1599.48 MILLIGRAM, DAY 2
     Route: 042
     Dates: start: 20230201
  4. DOXORUBICIN [Suspect]
     Active Substance: DOXORUBICIN
     Indication: Diffuse large B-cell lymphoma
     Dosage: UNK
     Route: 042
     Dates: start: 20230201, end: 20230517
  5. DOXORUBICIN [Suspect]
     Active Substance: DOXORUBICIN
     Dosage: UNK
     Route: 065
     Dates: start: 20230201, end: 20230517
  6. LENALIDOMIDE [Suspect]
     Active Substance: LENALIDOMIDE
     Dosage: THE LAST DOSE OF LENALIDOMIDE PRIOR TO THE EVENT WAS 10 MG.
     Route: 048
  7. LENALIDOMIDE [Suspect]
     Active Substance: LENALIDOMIDE
     Indication: Diffuse large B-cell lymphoma
     Dosage: THE LAST DOSE OF LENALIDOMIDE PRIOR TO THE EVENT WAS 10 MG.
     Route: 048
     Dates: start: 20230201, end: 20230523
  8. POLATUZUMAB VEDOTIN [Suspect]
     Active Substance: POLATUZUMAB VEDOTIN
     Indication: Diffuse large B-cell lymphoma
     Dosage: 147.6 MILLIGRAM (BINDING THERAPY); START DATE: 26-OCT-2023
     Route: 065
  9. PREDNISOLONE [Suspect]
     Active Substance: PREDNISOLONE
     Indication: Diffuse large B-cell lymphoma
     Dosage: 100 MILLIGRAM, DAY 1-5
     Route: 048
     Dates: start: 20230201, end: 20230517
  10. RITUXIMAB [Suspect]
     Active Substance: RITUXIMAB
     Dosage: 771.79 MG (BINDING THERAPY)
     Route: 065
     Dates: start: 20231026
  11. RITUXIMAB [Suspect]
     Active Substance: RITUXIMAB
     Indication: Diffuse large B-cell lymphoma
     Dosage: 779.74 MG, QD
     Route: 042
     Dates: start: 20230201, end: 20230517
  12. RITUXIMAB [Suspect]
     Active Substance: RITUXIMAB
     Dosage: 797.23 MG; LAST DOSE PRIOR THE EVENT
     Route: 042
  13. TAFASITAMAB [Suspect]
     Active Substance: TAFASITAMAB
     Indication: Diffuse large B-cell lymphoma
     Dosage: 1008 MG, LAST DOSE OF TAFASITAMAB PRIOR TO THE EVENT WAS RECEIVED ON 31-MAY-2023 AT DOSE OF 1063 MG
     Route: 042
     Dates: start: 20230201, end: 20230517
  14. TAFASITAMAB [Suspect]
     Active Substance: TAFASITAMAB
     Dosage: 1063 MG; LAST DOSE OF TAFASITAMAB PRIOR TO THE EVENT WAS RECEIVED ON 31-MAY-2023 AT DOSE OF 1063 MG
     Route: 042
     Dates: start: 20230531
  15. VINCRISTINE [Suspect]
     Active Substance: VINCRISTINE
     Indication: Diffuse large B-cell lymphoma
     Dosage: 2 MG, QOD; LAST DOSE PRIOR TO THE EVENT WAS 2 MG, DAY 1
     Route: 042
  16. VINCRISTINE [Suspect]
     Active Substance: VINCRISTINE
     Dosage: 2 MG, QOD; LAST DOSE PRIOR TO THE EVENT WAS 2 MG, DAY 1
     Route: 042
     Dates: start: 20230201

REACTIONS (2)
  - Lung adenocarcinoma stage I [Recovered/Resolved]
  - Disease progression [Unknown]

NARRATIVE: CASE EVENT DATE: 20231010
